FAERS Safety Report 9797851 (Version 1)
Quarter: 2014Q1

REPORT INFORMATION
  Report Type: Spontaneous
  Country: US (occurrence: None)
  Receive Date: 20140102
  Receipt Date: 20140102
  Transmission Date: 20141002
  Serious: Yes (Hospitalization)
  Sender: FDA-Public Use
  Company Number: None

PATIENT
  Age: 80 Year
  Sex: Male
  Weight: 80.6 kg

DRUGS (1)
  1. WARFARIN [Suspect]
     Indication: ATRIAL FIBRILLATION
     Dosage: 2 MG OTHER PO
     Route: 048
     Dates: start: 20100120, end: 20131203

REACTIONS (9)
  - Eye swelling [None]
  - Ecchymosis [None]
  - Fall [None]
  - Loss of consciousness [None]
  - Brain contusion [None]
  - Dizziness [None]
  - Swelling face [None]
  - Periorbital haematoma [None]
  - Haemorrhage intracranial [None]
